FAERS Safety Report 6580146-2 (Version None)
Quarter: 2010Q1

REPORT INFORMATION
  Report Type: 
  Country: None (occurrence: None)
  Receive Date: 20100212
  Receipt Date: 20100203
  Transmission Date: 20100710
  Serious: Yes (Other)
  Sender: FDA-Public Use
  Company Number: JP-ROCHE-635739

PATIENT
  Sex: Female

DRUGS (15)
  1. TOCILIZUMAB [Suspect]
     Indication: RHEUMATOID ARTHRITIS
     Route: 041
     Dates: start: 20090528, end: 20090528
  2. AZULFIDINE [Concomitant]
     Dosage: DOSE FORM: ENTERIC COATING DRUG.
     Route: 048
  3. PREDNISOLONE [Concomitant]
     Dosage: DOSE FORM: ORAL FORMULATION
     Route: 048
     Dates: end: 20090610
  4. PREDNISOLONE [Concomitant]
     Route: 048
     Dates: start: 20090611, end: 20090713
  5. PREDNISOLONE [Concomitant]
     Route: 048
     Dates: start: 20090714, end: 20090810
  6. PREDNISOLONE [Concomitant]
     Route: 048
     Dates: start: 20090811, end: 20091005
  7. PREDNISOLONE [Concomitant]
     Route: 048
     Dates: start: 20091006
  8. ENDOXAN [Concomitant]
     Route: 048
  9. THYRADIN S [Concomitant]
     Route: 048
  10. OMEPRAL [Concomitant]
     Dosage: DOSE FORM: ENTERIC.
     Route: 048
  11. NORVASC [Concomitant]
     Route: 048
  12. CELCOX [Concomitant]
     Route: 048
  13. BONALON [Concomitant]
     Route: 048
  14. BAKTAR [Concomitant]
     Dosage: DOSE FORM: ORAL FORMULATION
     Route: 048
  15. VOLTAREN [Concomitant]
     Dosage: DOSE FORM: RECTAL SUPPOSITORY.
     Route: 054

REACTIONS (1)
  - ANAPHYLACTIC SHOCK [None]
